FAERS Safety Report 8798741 (Version 1)
Quarter: 2012Q4

REPORT INFORMATION
  Report Type: Spontaneous
  Country: US (occurrence: None)
  Receive Date: 20120917
  Receipt Date: 20120917
  Transmission Date: 20130627
  Serious: Yes (Hospitalization, Disabling)
  Sender: FDA-Public Use
  Company Number: None

PATIENT
  Age: 23 Year
  Sex: Male
  Weight: 72.58 kg

DRUGS (3)
  1. CIPROFLOXACIN HCL [Suspect]
     Indication: PROSTATITIS
     Route: 048
     Dates: start: 20110729, end: 20120802
  2. PHENAZOPYRIDINE HCL [Concomitant]
  3. NAPROXEN [Concomitant]

REACTIONS (13)
  - Nonspecific reaction [None]
  - Joint crepitation [None]
  - Anxiety [None]
  - Confusional state [None]
  - Nervous system disorder [None]
  - Feeling abnormal [None]
  - Insomnia [None]
  - Dry eye [None]
  - Dry mouth [None]
  - Thirst [None]
  - Tendonitis [None]
  - Blood bilirubin increased [None]
  - Hypoaesthesia [None]
